FAERS Safety Report 15615680 (Version 1)
Quarter: 2018Q4

REPORT INFORMATION
  Report Type: Spontaneous
  Country: US (occurrence: US)
  Receive Date: 20181114
  Receipt Date: 20181114
  Transmission Date: 20190205
  Serious: Yes (Hospitalization, Other)
  Sender: FDA-Public Use
  Company Number: US-BEH-2018096602

PATIENT
  Age: 24 Year
  Sex: Male

DRUGS (4)
  1. HAEGARDA [Suspect]
     Active Substance: HUMAN C1-ESTERASE INHIBITOR
     Indication: PROPHYLAXIS
  2. HAEGARDA [Suspect]
     Active Substance: HUMAN C1-ESTERASE INHIBITOR
     Indication: HEREDITARY ANGIOEDEMA
     Dosage: 2000 IU, EVERY 3 DAYS
     Route: 058
     Dates: start: 20180531
  3. HAEGARDA [Suspect]
     Active Substance: HUMAN C1-ESTERASE INHIBITOR
     Indication: HEREDITARY ANGIOEDEMA
     Dosage: 3000 IU, UNK
     Route: 058
     Dates: start: 20180531
  4. HAEGARDA [Suspect]
     Active Substance: HUMAN C1-ESTERASE INHIBITOR
     Indication: PROPHYLAXIS

REACTIONS (4)
  - Hereditary angioedema [Unknown]
  - Hereditary angioedema [Unknown]
  - Localised infection [Unknown]
  - Limb crushing injury [Unknown]

NARRATIVE: CASE EVENT DATE: 20181013
